FAERS Safety Report 4678141-3 (Version None)
Quarter: 2005Q2

REPORT INFORMATION
  Report Type: 
  Country: None (occurrence: None)
  Receive Date: 20050527
  Receipt Date: 20050516
  Transmission Date: 20051028
  Serious: Yes (Hospitalization)
  Sender: FDA-Public Use
  Company Number: 2005056341

PATIENT
  Age: 83 Year
  Sex: Female
  Weight: 70.3075 kg

DRUGS (6)
  1. CELEBREX [Suspect]
     Indication: ILL-DEFINED DISORDER
     Dates: end: 20050101
  2. DILANTIN [Suspect]
     Indication: CONVULSION
     Dosage: 200 MG (200 MG, 2 IN 1 D)
  3. DETROL LA [Suspect]
     Indication: MICTURITION URGENCY
     Dosage: 4 MG (1 D), ORAL
     Route: 048
     Dates: start: 20050101
  4. FOSAMAX [Concomitant]
  5. ACTONEL [Concomitant]
  6. LORCET-HD [Concomitant]

REACTIONS (11)
  - CARDIAC MURMUR [None]
  - DIFFICULTY IN WALKING [None]
  - FALL [None]
  - GRAND MAL CONVULSION [None]
  - GROIN PAIN [None]
  - HAND FRACTURE [None]
  - HYPOAESTHESIA [None]
  - MICTURITION URGENCY [None]
  - NAUSEA [None]
  - PAIN [None]
  - TREATMENT NONCOMPLIANCE [None]
